FAERS Safety Report 7470972-X (Version None)
Quarter: 2011Q2

REPORT INFORMATION
  Report Type: 
  Country: None (occurrence: None)
  Receive Date: 20110502
  Receipt Date: 20110425
  Transmission Date: 20111010
  Serious: Yes (Other)
  Sender: FDA-Public Use
  Company Number: 2011SP018307

PATIENT
  Sex: Female

DRUGS (1)
  1. DESOGESTRE/ETHINYL ESTRADIOL [Suspect]
     Indication: CONTRACEPTION
     Dates: start: 20110415

REACTIONS (4)
  - ACNE [None]
  - SKIN EXFOLIATION [None]
  - VAGINAL DISCHARGE [None]
  - PRURITUS [None]
